FAERS Safety Report 13163291 (Version 1)
Quarter: 2017Q1

REPORT INFORMATION
  Report Type: Spontaneous
  Country: US (occurrence: US)
  Receive Date: 20170129
  Receipt Date: 20170129
  Transmission Date: 20170428
  Serious: No
  Sender: FDA-Public Use
  Company Number: None

PATIENT
  Age: 59 Year
  Sex: Female
  Weight: 75.6 kg

DRUGS (7)
  1. ATORVASTATIN [Suspect]
     Active Substance: ATORVASTATIN
     Indication: ISCHAEMIA
     Dosage: ?          QUANTITY:1 TABLET(S);?
     Route: 048
     Dates: start: 20160901, end: 20161201
  2. FELEXERIL 10 MG [Concomitant]
  3. MULTI-MINERAL [Concomitant]
  4. HONEY [Concomitant]
     Active Substance: HONEY
  5. ASPIRIN. [Concomitant]
     Active Substance: ASPIRIN
  6. MULTI-VITAMIN [Concomitant]
     Active Substance: .ALPHA.-TOCOPHEROL ACETATE, DL-\ASCORBIC ACID\CYANOCOBALAMIN\FLUORIDE ION\FOLIC ACID\NIACIN\PYRIDOXINE\RIBOFLAVIN\THIAMINE\VITAMIN A\VITAMIN D
  7. CINNAMON. [Concomitant]
     Active Substance: CINNAMON

REACTIONS (2)
  - Pain in extremity [None]
  - Headache [None]

NARRATIVE: CASE EVENT DATE: 20161031
